FAERS Safety Report 8473095-6 (Version None)
Quarter: 2012Q2

REPORT INFORMATION
  Report Type: 
  Country: None (occurrence: None)
  Receive Date: 20120627
  Receipt Date: 20120615
  Transmission Date: 20120825
  Serious: Yes (Other)
  Sender: FDA-Public Use
  Company Number: JP-ROCHE-1080452

PATIENT
  Sex: Female
  Weight: 59 kg

DRUGS (11)
  1. XOLAIR [Suspect]
     Indication: ASTHMA
     Route: 058
     Dates: start: 20110413, end: 20110803
  2. ADVAIR DISKUS 100/50 [Concomitant]
     Dates: start: 20100213
  3. RANITIDINE [Concomitant]
     Dates: start: 20061220
  4. ZOLPIDEM [Concomitant]
     Dates: start: 20070117
  5. ALDACTONE [Concomitant]
     Dates: start: 20061220
  6. BEPRICOR [Concomitant]
     Dates: start: 20061220
  7. ASCATE [Concomitant]
     Dates: start: 20100721
  8. THEOPHYLLINE [Concomitant]
     Dates: start: 20100818
  9. ASPIRIN [Concomitant]
     Dates: start: 20061220
  10. LEVOGLUTAMIDE/SODIUM GUALENATE [Concomitant]
     Dates: start: 20100721
  11. ONON [Concomitant]
     Dates: start: 20101110

REACTIONS (2)
  - DEPRESSIVE SYMPTOM [None]
  - SUICIDAL IDEATION [None]
